FAERS Safety Report 18868523 (Version 2)
Quarter: 2021Q1

REPORT INFORMATION
  Report Type: Spontaneous
  Country: US (occurrence: US)
  Receive Date: 20210209
  Receipt Date: 20210218
  Transmission Date: 20210420
  Serious: Yes (Hospitalization)
  Sender: FDA-Public Use
  Company Number: US-NOVOPROD-785336

PATIENT
  Age: 90 Year
  Sex: Female

DRUGS (2)
  1. NOVOLOG [Suspect]
     Active Substance: INSULIN ASPART
     Indication: PRODUCT USED FOR UNKNOWN INDICATION
     Dosage: 36 IU, QD
     Route: 058
  2. LEVEMIR [Suspect]
     Active Substance: INSULIN DETEMIR
     Indication: PRODUCT USED FOR UNKNOWN INDICATION
     Dosage: 35 IU, QD ( IN THE EVENING)
     Route: 058

REACTIONS (4)
  - Mental disorder [Unknown]
  - Ill-defined disorder [Unknown]
  - Fall [Unknown]
  - Migraine [Unknown]

NARRATIVE: CASE EVENT DATE: 202006
